FAERS Safety Report 12653288 (Version 6)
Quarter: 2018Q2

REPORT INFORMATION
  Report Type: Report from Study
  Country: US (occurrence: US)
  Receive Date: 20160815
  Receipt Date: 20180504
  Transmission Date: 20180711
  Serious: Yes (Hospitalization)
  Sender: FDA-Public Use
  Company Number: US-ACTELION-A-US2016-140511

PATIENT
  Age: 85 Year
  Sex: Female
  Weight: 63.49 kg

DRUGS (5)
  1. OPSUMIT [Suspect]
     Active Substance: MACITENTAN
     Indication: PULMONARY ARTERIAL HYPERTENSION
     Dosage: 10 MG, QD
     Route: 048
     Dates: start: 20140224
  2. OXYGEN. [Concomitant]
     Active Substance: OXYGEN
  3. AMLODIPINE [Concomitant]
     Active Substance: AMLODIPINE BESYLATE
  4. XARELTO [Concomitant]
     Active Substance: RIVAROXABAN
  5. REVATIO [Concomitant]
     Active Substance: SILDENAFIL CITRATE

REACTIONS (25)
  - Pulmonary thrombosis [Unknown]
  - Haematochezia [Unknown]
  - Dyspnoea [Unknown]
  - Thrombosis [Unknown]
  - Gait disturbance [Unknown]
  - Peripheral swelling [Unknown]
  - Anxiety [Unknown]
  - Nausea [Unknown]
  - Contusion [Unknown]
  - Weight decreased [Unknown]
  - Unevaluable event [Unknown]
  - Burning sensation [Unknown]
  - Asthma [Unknown]
  - Epistaxis [Unknown]
  - Decreased appetite [Unknown]
  - Peripheral embolism [Unknown]
  - Blood urine present [Unknown]
  - Faeces discoloured [Unknown]
  - Malaise [Unknown]
  - Pruritus [Unknown]
  - Glaucoma [Unknown]
  - Chest discomfort [Unknown]
  - Muscular weakness [Unknown]
  - Nervousness [Unknown]
  - Balance disorder [Unknown]
